FAERS Safety Report 5954446-0 (Version None)
Quarter: 2008Q4

REPORT INFORMATION
  Report Type: 
  Country: None (occurrence: None)
  Receive Date: 20081117
  Receipt Date: 20081110
  Transmission Date: 20090506
  Serious: Yes (Life-Threatening, Other)
  Sender: FDA-Public Use
  Company Number: BR-ROCHE-593707

PATIENT
  Age: 19 Year
  Sex: Male

DRUGS (1)
  1. ROACUTAN [Suspect]
     Indication: ACNE
     Route: 048
     Dates: start: 20070101, end: 20070101

REACTIONS (4)
  - HEPATITIS [None]
  - INFECTIOUS MONONUCLEOSIS [None]
  - LEUKOCYTOSIS [None]
  - RED BLOOD CELL SEDIMENTATION RATE INCREASED [None]
